FAERS Safety Report 12579563 (Version 3)
Quarter: 2016Q4

REPORT INFORMATION
  Report Type: Spontaneous
  Country: FR (occurrence: FR)
  Receive Date: 20160721
  Receipt Date: 20161024
  Transmission Date: 20170207
  Serious: Yes (Other)
  Sender: FDA-Public Use
  Company Number: FR-TOLMAR, INC.-2016FR007013

PATIENT
  Age: 71 Year
  Sex: Male

DRUGS (3)
  1. XTANDI [Suspect]
     Active Substance: ENZALUTAMIDE
     Indication: PROSTATE CANCER METASTATIC
     Dosage: 160 MG, DAILY
     Route: 065
     Dates: start: 20150720, end: 20160623
  2. XTANDI [Suspect]
     Active Substance: ENZALUTAMIDE
     Dosage: UNK/CYCLE DURATION 21 DAYS
     Dates: start: 20160627
  3. ELIGARD [Suspect]
     Active Substance: LEUPROLIDE ACETATE
     Indication: PROSTATE CANCER METASTATIC
     Dosage: UNK, 6 MONTHS
     Route: 065
     Dates: start: 201308

REACTIONS (2)
  - Condition aggravated [Unknown]
  - Hormone-refractory prostate cancer [Unknown]

NARRATIVE: CASE EVENT DATE: 201505
